FAERS Safety Report 6109319-X (Version None)
Quarter: 2009Q1

REPORT INFORMATION
  Report Type: 
  Country: None (occurrence: None)
  Receive Date: 20090310
  Receipt Date: 20090302
  Transmission Date: 20090719
  Serious: Yes (Hospitalization)
  Sender: FDA-Public Use
  Company Number: GB-AMGEN-US336817

PATIENT
  Sex: Male
  Weight: 82 kg

DRUGS (3)
  1. ENBREL [Suspect]
     Indication: RHEUMATOID ARTHRITIS
     Route: 058
     Dates: start: 20040210
  2. INDOMETHACIN [Concomitant]
     Dosage: UNKNOWN
     Route: 065
  3. ACETAMINOPHEN WITH PROPOXYPHENE HCL TAB [Concomitant]
     Dosage: UNKNOWN
     Route: 065

REACTIONS (2)
  - SUBCUTANEOUS ABSCESS [None]
  - SYNOVIAL RUPTURE [None]
